FAERS Safety Report 7217949-7 (Version None)
Quarter: 2011Q1

REPORT INFORMATION
  Report Type: 
  Country: None (occurrence: None)
  Receive Date: 20110110
  Receipt Date: 20110104
  Transmission Date: 20110831
  Serious: Yes (Life-Threatening, Disabling)
  Sender: FDA-Public Use
  Company Number: A0902843A

PATIENT
  Age: 59 Year
  Sex: Male

DRUGS (3)
  1. LITHIUM [Concomitant]
  2. LAMICTAL [Suspect]
     Indication: BIPOLAR DISORDER
     Dosage: 300MG TWICE PER DAY
     Route: 048
  3. NEURONTIN [Concomitant]

REACTIONS (2)
  - OVERDOSE [None]
  - DRUG INEFFECTIVE [None]
